FAERS Safety Report 4729673-0 (Version None)
Quarter: 2005Q3

REPORT INFORMATION
  Report Type: 
  Country: None (occurrence: None)
  Receive Date: 20050728
  Receipt Date: 20050715
  Transmission Date: 20060218
  Serious: Yes (Hospitalization, Other)
  Sender: FDA-Public Use
  Company Number: 2005075560

PATIENT
  Age: 61 Year
  Sex: Female
  Weight: 65.7716 kg

DRUGS (9)
  1. DETROL LA [Suspect]
     Indication: NOCTURIA
     Dosage: 4 MG (4 MG, 1 IN 1 D)
     Dates: start: 20050308, end: 20050315
  2. DIURETICS [Concomitant]
  3. ALPRAZOLAM [Concomitant]
  4. LABETALOL [Concomitant]
  5. TRAMADOL HCL [Concomitant]
  6. FUROSEMIDE [Concomitant]
  7. LEVOTHYROXINE SODIUM [Concomitant]
  8. ESTROGENS CONJUGATED [Concomitant]
  9. METHOTREXATE [Concomitant]

REACTIONS (10)
  - ABDOMINAL DISTENSION [None]
  - ABDOMINAL PAIN [None]
  - BLADDER OBSTRUCTION [None]
  - CONDITION AGGRAVATED [None]
  - CONSTIPATION [None]
  - DRY MOUTH [None]
  - DYSURIA [None]
  - KIDNEY INFECTION [None]
  - OEDEMA PERIPHERAL [None]
  - URINARY RETENTION [None]
